FAERS Safety Report 9723365 (Version 1)
Quarter: 2013Q4

REPORT INFORMATION
  Report Type: Spontaneous
  Country: US (occurrence: US)
  Receive Date: 20131202
  Receipt Date: 20131202
  Transmission Date: 20140711
  Serious: No
  Sender: FDA-Public Use
  Company Number: US-GLAXOSMITHKLINE-A1031562A

PATIENT
  Age: 60 Year
  Sex: Female

DRUGS (4)
  1. FLONASE [Suspect]
     Indication: RHINITIS ALLERGIC
     Dosage: 2SPR PER DAY
     Route: 045
     Dates: end: 20130522
  2. LUMIGAN [Concomitant]
  3. ALPHAGAN [Concomitant]
  4. MULTIVITAMINS [Concomitant]

REACTIONS (2)
  - Epistaxis [Recovered/Resolved]
  - Intraocular pressure increased [Not Recovered/Not Resolved]
